FAERS Safety Report 19609279 (Version 1)
Quarter: 2021Q3

REPORT INFORMATION
  Report Type: Spontaneous
  Country: US (occurrence: US)
  Receive Date: 20210726
  Receipt Date: 20210726
  Transmission Date: 20211014
  Serious: Yes (Hospitalization)
  Sender: FDA-Public Use
  Company Number: None

PATIENT
  Age: 66 Year
  Sex: Female
  Weight: 50.6 kg

DRUGS (22)
  1. NIVOLUMAB [Suspect]
     Active Substance: NIVOLUMAB
     Indication: SMALL CELL LUNG CANCER
     Dosage: ?          OTHER FREQUENCY:Q28D;?
     Route: 042
     Dates: start: 20200110, end: 20210702
  2. RUCAPARIB [Suspect]
     Active Substance: RUCAPARIB
     Indication: SMALL CELL LUNG CANCER
     Route: 048
     Dates: start: 20200110, end: 20210723
  3. TRAZODONE [Concomitant]
     Active Substance: TRAZODONE HYDROCHLORIDE
  4. MORPHINE [Concomitant]
     Active Substance: MORPHINE
  5. MIRALAX [Concomitant]
     Active Substance: POLYETHYLENE GLYCOL 3350
  6. NAPROXEN. [Concomitant]
     Active Substance: NAPROXEN
  7. ASA [Concomitant]
     Active Substance: ASPIRIN
  8. PROMETHAZINE [Concomitant]
     Active Substance: PROMETHAZINE HYDROCHLORIDE
  9. PROCHLORPERAZINE. [Concomitant]
     Active Substance: PROCHLORPERAZINE
  10. OXYCODONE [Concomitant]
     Active Substance: OXYCODONE
  11. METOPROLOL. [Concomitant]
     Active Substance: METOPROLOL
  12. PROTONIX [Concomitant]
     Active Substance: PANTOPRAZOLE SODIUM
  13. DESVENLAFAXINE. [Concomitant]
     Active Substance: DESVENLAFAXINE
  14. ZOFRAN [Concomitant]
     Active Substance: ONDANSETRON HYDROCHLORIDE
  15. VITAMIN D [Concomitant]
     Active Substance: VITAMIN D NOS
  16. MARINOL [Concomitant]
     Active Substance: DRONABINOL
  17. DOCUSATE SENNA [Concomitant]
  18. LISINOPRIL. [Concomitant]
     Active Substance: LISINOPRIL
  19. DULOXETINE. [Concomitant]
     Active Substance: DULOXETINE
  20. NIACIN. [Concomitant]
     Active Substance: NIACIN
  21. NALOXEGOL [Concomitant]
     Active Substance: NALOXEGOL
  22. LEVOTHYROXINE. [Concomitant]
     Active Substance: LEVOTHYROXINE

REACTIONS (1)
  - Disease progression [None]

NARRATIVE: CASE EVENT DATE: 20210724
